FAERS Safety Report 8383487-1 (Version None)
Quarter: 2012Q2

REPORT INFORMATION
  Report Type: 
  Country: None (occurrence: None)
  Receive Date: 20120524
  Receipt Date: 20120517
  Transmission Date: 20120825
  Serious: Yes (Other)
  Sender: FDA-Public Use
  Company Number: PHHY2012BR042623

PATIENT
  Sex: Female

DRUGS (2)
  1. RITALIN [Suspect]
  2. IMIPRAMINE [Suspect]

REACTIONS (1)
  - ILIAC ARTERY OCCLUSION [None]
